FAERS Safety Report 12860264 (Version 1)
Quarter: 2016Q4

REPORT INFORMATION
  Report Type: Spontaneous
  Country: US (occurrence: US)
  Receive Date: 20161019
  Receipt Date: 20161019
  Transmission Date: 20170207
  Serious: Yes (Other)
  Sender: FDA-Public Use
  Company Number: US-BELCHER PHARMACEUTICALS, LLC-2016VTS00197

PATIENT
  Age: 36 Year
  Sex: Female
  Weight: 49.43 kg

DRUGS (1)
  1. HYOSCYAMINE SULFATE SL [Suspect]
     Active Substance: HYOSCYAMINE SULFATE
     Indication: CROHN^S DISEASE
     Dosage: 1 TABLETS, 6X/DAY
     Route: 060
     Dates: start: 201609, end: 20161004

REACTIONS (3)
  - Dyspnoea [Recovered/Resolved]
  - Palpitations [Recovered/Resolved]
  - Anxiety [Recovered/Resolved]

NARRATIVE: CASE EVENT DATE: 201609
